FAERS Safety Report 10669453 (Version 3)
Quarter: 2015Q1

REPORT INFORMATION
  Report Type: Spontaneous
  Country: US (occurrence: US)
  Receive Date: 20141222
  Receipt Date: 20150116
  Transmission Date: 20150720
  Serious: Yes (Death, Hospitalization)
  Sender: FDA-Public Use
  Company Number: US-B.I. PHARMACEUTICALS,INC./RIDGEFIELD-2014-BI-61710BP

PATIENT
  Age: 72 Year
  Sex: Male

DRUGS (10)
  1. AGGRENOX [Suspect]
     Active Substance: ASPIRIN\DIPYRIDAMOLE
     Indication: PRODUCT USED FOR UNKNOWN INDICATION
     Dosage: DOSE PER APPLICATION AND DAILY DOSE: 25MG/ 200MG
     Route: 048
     Dates: start: 2013, end: 20141209
  2. ADVAIR HFA [Concomitant]
     Active Substance: FLUTICASONE PROPIONATE\SALMETEROL XINAFOATE
     Indication: CHRONIC OBSTRUCTIVE PULMONARY DISEASE
     Route: 055
  3. LOVASTATIN. [Concomitant]
     Active Substance: LOVASTATIN
     Indication: BLOOD CHOLESTEROL INCREASED
     Route: 048
  4. SPIRIVA [Suspect]
     Active Substance: TIOTROPIUM BROMIDE MONOHYDRATE
     Indication: CHRONIC OBSTRUCTIVE PULMONARY DISEASE
     Dosage: 18 MCG
     Route: 055
     Dates: start: 2011, end: 20141209
  5. LOSARTAN [Concomitant]
     Active Substance: LOSARTAN
     Indication: HYPERTENSION
     Route: 048
  6. AMLODIPINE [Concomitant]
     Active Substance: AMLODIPINE BESYLATE
     Indication: HYPERTENSION
     Route: 048
  7. HUMULIN NOS [Concomitant]
     Active Substance: INSULIN HUMAN
     Indication: DIABETES MELLITUS
     Dosage: FORMULATION : SUBCUTANEOUS
     Route: 058
  8. BYSTOLIC [Concomitant]
     Active Substance: NEBIVOLOL HYDROCHLORIDE
     Indication: HYPERTENSION
     Route: 048
  9. LEVOTHYROXINE [Concomitant]
     Active Substance: LEVOTHYROXINE
     Indication: HYPOTHYROIDISM
     Route: 048
  10. NOVOLIN [Concomitant]
     Active Substance: INSULIN HUMAN
     Indication: DIABETES MELLITUS
     Dosage: FORMULATION : SUBCUTANEOUS
     Route: 058

REACTIONS (3)
  - Transient ischaemic attack [Unknown]
  - Small cell lung cancer [Fatal]
  - Pneumonia [Fatal]

NARRATIVE: CASE EVENT DATE: 201410
